FAERS Safety Report 17536040 (Version 1)
Quarter: 2020Q1

REPORT INFORMATION
  Report Type: Report from Study
  Country: SA (occurrence: SA)
  Receive Date: 20200313
  Receipt Date: 20200313
  Transmission Date: 20200409
  Serious: Yes (Life-Threatening, Hospitalization, Other)
  Sender: FDA-Public Use
  Company Number: SA-CELLTRION INC.-2019SA027771

PATIENT

DRUGS (9)
  1. REMSIMA [Suspect]
     Active Substance: INFLIXIMAB
     Dosage: 5 MG/KG ON 0, 2, 6 WEEKS
  2. AZATHIOPRINE. [Concomitant]
     Active Substance: AZATHIOPRINE
     Indication: CROHN^S DISEASE
     Dosage: 100 MG (100 MG,1 IN 1 D)
     Route: 048
     Dates: start: 20190506
  3. REMSIMA [Suspect]
     Active Substance: INFLIXIMAB
     Dosage: 5 MILLIGRAM/KILOGRAM
     Dates: start: 20190909
  4. REMSIMA [Suspect]
     Active Substance: INFLIXIMAB
     Dosage: 10 MILLIGRAM/KILOGRAM
     Dates: start: 20191104
  5. ENOXAPARIN [Concomitant]
     Active Substance: ENOXAPARIN
     Indication: THROMBOSIS PROPHYLAXIS
     Dosage: 40 INTERNATIONAL UNIT, QD
     Route: 058
     Dates: start: 20191115, end: 20191121
  6. REMSIMA [Suspect]
     Active Substance: INFLIXIMAB
     Indication: CROHN^S DISEASE
     Dosage: 0.1786 MG/KG (10 MG/KG) AT WEEKS 0, 2, 6, AND EVERY 8 WEEKS
     Route: 042
     Dates: start: 20190530
  7. REMSIMA [Suspect]
     Active Substance: INFLIXIMAB
     Dosage: 5MG/KG (200MG)
  8. OMEPRAZOLE. [Concomitant]
     Active Substance: OMEPRAZOLE
     Indication: PROPHYLAXIS
     Dosage: 40 MG, QD
     Route: 042
     Dates: start: 20191115, end: 20191222
  9. OMEPRAZOLE. [Concomitant]
     Active Substance: OMEPRAZOLE
     Dosage: 20 MG, DAILY
     Route: 048
     Dates: start: 20191222

REACTIONS (8)
  - Clostridium difficile colitis [Recovered/Resolved]
  - Overdose [Unknown]
  - Fistula of small intestine [Recovered/Resolved with Sequelae]
  - Colonic fistula [Recovered/Resolved with Sequelae]
  - Intestinal obstruction [Recovered/Resolved with Sequelae]
  - Abdominal abscess [Recovered/Resolved]
  - Crohn^s disease [Recovered/Resolved with Sequelae]
  - Cholelithiasis [Recovered/Resolved]

NARRATIVE: CASE EVENT DATE: 20190714
